FAERS Safety Report 7535184-X (Version None)
Quarter: 2011Q2

REPORT INFORMATION
  Report Type: 
  Country: None (occurrence: None)
  Receive Date: 20110609
  Receipt Date: 20090317
  Transmission Date: 20111010
  Serious: Yes (Death, Hospitalization, Other)
  Sender: FDA-Public Use
  Company Number: PHHY2009JP03714

PATIENT
  Sex: Male

DRUGS (6)
  1. METLIGINE [Concomitant]
     Dosage: 4 MG
     Route: 048
     Dates: start: 20070405, end: 20070925
  2. MEXILETINE HYDROCHLORIDE [Concomitant]
     Dosage: 450 MG
     Route: 048
     Dates: start: 20001010, end: 20070925
  3. VALSARTAN [Suspect]
     Indication: HYPERTENSION
     Dosage: 40 MG, QD
     Route: 048
     Dates: start: 20070801, end: 20070925
  4. TOFRANIL [Concomitant]
     Dosage: 75 MG
     Route: 048
     Dates: start: 20010402, end: 20070925
  5. CLONAZEPAM [Concomitant]
     Dosage: 5 MG
     Route: 048
     Dates: start: 20010929, end: 20070925
  6. MAGMITT KENEI [Concomitant]
     Dosage: 750 MG
     Route: 048
     Dates: start: 20070828, end: 20070925

REACTIONS (3)
  - PNEUMONIA ASPIRATION [None]
  - PNEUMONIA [None]
  - GASTRIC CANCER RECURRENT [None]
